FAERS Safety Report 10341984 (Version 2)
Quarter: 2014Q3

REPORT INFORMATION
  Report Type: Spontaneous
  Country: US (occurrence: US)
  Receive Date: 20140725
  Receipt Date: 20140915
  Transmission Date: 20150326
  Serious: No
  Sender: FDA-Public Use
  Company Number: US-ASTRAZENECA-2014SE51936

PATIENT
  Age: 66 Year
  Sex: Female
  Weight: 68.5 kg

DRUGS (2)
  1. CRESTOR [Suspect]
     Active Substance: ROSUVASTATIN CALCIUM
     Indication: BLOOD CHOLESTEROL ABNORMAL
     Route: 048
     Dates: start: 201404, end: 20140711
  2. OCUVITE [Concomitant]
     Active Substance: VITAMINS
     Indication: VITAMIN SUPPLEMENTATION
     Dosage: FOR 50 PLUS ADULTS

REACTIONS (7)
  - Blood sodium increased [Unknown]
  - Platelet count decreased [Unknown]
  - Blood creatine phosphokinase increased [Recovered/Resolved]
  - Intentional product misuse [Unknown]
  - Amylase increased [Recovered/Resolved]
  - Lipase increased [Recovered/Resolved]
  - Blood cholesterol increased [Unknown]

NARRATIVE: CASE EVENT DATE: 201407
